FAERS Safety Report 10471003 (Version 1)
Quarter: 2014Q3

REPORT INFORMATION
  Report Type: Spontaneous
  Country: US (occurrence: GB)
  Receive Date: 20140923
  Receipt Date: 20140923
  Transmission Date: 20150326
  Serious: Yes (Life-Threatening, Hospitalization, Other)
  Sender: FDA-Public Use
  Company Number: GB-PFIZER INC-2014258568

PATIENT
  Age: 17 Year
  Sex: Male

DRUGS (1)
  1. PHENYTOIN. [Suspect]
     Active Substance: PHENYTOIN
     Indication: GENERALISED TONIC-CLONIC SEIZURE
     Dosage: 200 MG, 1X/DAY

REACTIONS (3)
  - Colitis ulcerative [Recovered/Resolved]
  - Malnutrition [Recovered/Resolved]
  - Stevens-Johnson syndrome [Recovered/Resolved]
